FAERS Safety Report 11755130 (Version 1)
Quarter: 2015Q4

REPORT INFORMATION
  Report Type: Spontaneous
  Country: NL (occurrence: NL)
  Receive Date: 20151119
  Receipt Date: 20151119
  Transmission Date: 20160304
  Serious: Yes (Hospitalization, Other)
  Sender: FDA-Public Use
  Company Number: NL-PFIZER INC-2015354830

PATIENT
  Age: 76 Year
  Sex: Female
  Weight: 40 kg

DRUGS (14)
  1. GABAPENTIN. [Suspect]
     Active Substance: GABAPENTIN
     Dosage: 300 MG, 3X/DAY
  2. COLECALCIFEROL [Concomitant]
     Active Substance: CHOLECALCIFEROL
     Dosage: 1 ML (50000 IU/ML), WEEKLY
     Route: 048
     Dates: start: 20150818
  3. METOCLOPRAMIDE DIHYDROCHLORIDE [Concomitant]
     Dosage: 10 MG, AS NEEDED (MAX  MAX 3X/DAY WHEN NAUSEOUS)
     Route: 048
     Dates: start: 20150812
  4. SUPRADYN COMPLEX FORTE [Concomitant]
     Dosage: 1 DF, 1X/DAY
     Route: 048
     Dates: start: 20150812
  5. KALIUMCHLORIDE [Concomitant]
     Dosage: 20 ML (75 MG/ML), 3X/DAY
     Route: 048
     Dates: start: 20150918
  6. ACETYLSALICYLZUUR [Concomitant]
     Dosage: 80 MG, 1X/DAY
     Route: 048
     Dates: start: 20150812
  7. PANTOPRAZOL [Concomitant]
     Active Substance: PANTOPRAZOLE SODIUM
     Dosage: 40 MG, 1X/DAY
     Route: 048
     Dates: start: 20150812
  8. LEVOTHYROXINE. [Concomitant]
     Active Substance: LEVOTHYROXINE
     Dosage: 150 ?G, 1X/DAY
     Route: 003
     Dates: start: 20150812
  9. GABAPENTIN. [Suspect]
     Active Substance: GABAPENTIN
     Indication: POLYNEUROPATHY
     Dosage: 300 MG, 1X/DAY
     Route: 048
     Dates: start: 20150923, end: 20150928
  10. KETOCONAZOL [Concomitant]
     Active Substance: KETOCONAZOLE
     Dosage: 1 DF (20 MG/G), 2X/WEEK, WAIT 3-5 MINUTES BEFORE WASHING OUT THE SHAMPOO
     Route: 003
     Dates: start: 20150826
  11. HYDROXOCOBALAMINE [Concomitant]
     Dosage: 1000 ?G (2 ML 500 ?G/ML), 2X/WEEK
     Route: 048
     Dates: start: 20150812, end: 20151001
  12. LOPERAMIDE [Concomitant]
     Active Substance: LOPERAMIDE
     Dosage: 2 MG, AS NEEDED (MAX 2X/DAY WITH DIARRHEA)
     Route: 048
     Dates: start: 20150812
  13. GABAPENTIN. [Suspect]
     Active Substance: GABAPENTIN
     Dosage: 300 MG, 2X/DAY
  14. CALCIUMCARBONAAT [Concomitant]
     Dosage: 500 MG, 1X/DAY
     Route: 048
     Dates: start: 20150812

REACTIONS (7)
  - Dysphagia [Unknown]
  - Condition aggravated [Not Recovered/Not Resolved]
  - Dizziness [Not Recovered/Not Resolved]
  - Muscular weakness [Unknown]
  - Swollen tongue [Not Recovered/Not Resolved]
  - Dysarthria [Not Recovered/Not Resolved]
  - Myasthenia gravis [Not Recovered/Not Resolved]

NARRATIVE: CASE EVENT DATE: 20150925
